FAERS Safety Report 23231321 (Version 1)
Quarter: 2023Q4

REPORT INFORMATION
  Report Type: Spontaneous
  Country: US (occurrence: US)
  Receive Date: 20231127
  Receipt Date: 20231127
  Transmission Date: 20240110
  Serious: No
  Sender: FDA-Public Use
  Company Number: US-ABBVIE-5509203

PATIENT
  Age: 53 Year
  Sex: Male
  Weight: 99.336 kg

DRUGS (12)
  1. HUMIRA [Suspect]
     Active Substance: ADALIMUMAB
     Indication: Psoriatic arthropathy
     Dosage: FORM STRENGTH: 40 MG CF
     Route: 058
     Dates: start: 20231102
  2. BUSPIRONE [Concomitant]
     Active Substance: BUSPIRONE HYDROCHLORIDE
     Indication: Anxiety
  3. HERBALS\SPIRULINA [Concomitant]
     Active Substance: HERBALS\SPIRULINA
     Indication: Anxiety
  4. TRAZODONE [Concomitant]
     Active Substance: TRAZODONE HYDROCHLORIDE
     Indication: Blood triglycerides
  5. CLARITIN [Concomitant]
     Active Substance: LORATADINE
     Indication: Hypersensitivity
  6. NEXIUM [Concomitant]
     Active Substance: ESOMEPRAZOLE MAGNESIUM
     Indication: Gastrooesophageal reflux disease
  7. TESTOSTERONE [Concomitant]
     Active Substance: TESTOSTERONE
     Indication: Product used for unknown indication
  8. LOSARTAN [Concomitant]
     Active Substance: LOSARTAN
     Indication: Blood pressure measurement
  9. TAURINE [Concomitant]
     Active Substance: TAURINE
     Indication: Sleep disorder
  10. AMLODIPINE [Concomitant]
     Active Substance: AMLODIPINE BESYLATE
     Indication: Blood pressure measurement
  11. Celebrex` [Concomitant]
     Indication: Pain
  12. ATENOLOL [Concomitant]
     Active Substance: ATENOLOL
     Indication: Heart rate

REACTIONS (3)
  - Injection site discharge [Not Recovered/Not Resolved]
  - Injection site bruising [Not Recovered/Not Resolved]
  - Product storage error [Not Recovered/Not Resolved]

NARRATIVE: CASE EVENT DATE: 20231101
